FAERS Safety Report 21629516 (Version 1)
Quarter: 2022Q4

REPORT INFORMATION
  Report Type: Spontaneous
  Country: US (occurrence: US)
  Receive Date: 20221122
  Receipt Date: 20221122
  Transmission Date: 20230113
  Serious: No
  Sender: FDA-Public Use
  Company Number: US-ALLERGAN-2219271US

PATIENT

DRUGS (5)
  1. MEMANTINE HYDROCHLORIDE [Suspect]
     Active Substance: MEMANTINE HYDROCHLORIDE
     Indication: Cognitive disorder
     Dosage: UNK
  2. STRATTERA [Concomitant]
     Active Substance: ATOMOXETINE HYDROCHLORIDE
     Indication: Cognitive disorder
  3. WELLBUTRIN [Concomitant]
     Active Substance: BUPROPION HYDROCHLORIDE
     Indication: Cognitive disorder
  4. RALOXIFENE [Concomitant]
     Active Substance: RALOXIFENE
     Indication: Cognitive disorder
  5. NMDAR ENHANCER [Concomitant]
     Indication: Cognitive disorder

REACTIONS (1)
  - Off label use [Unknown]
